FAERS Safety Report 24568670 (Version 2)
Quarter: 2024Q4

REPORT INFORMATION
  Report Type: Spontaneous
  Country: US (occurrence: US)
  Receive Date: 20241031
  Receipt Date: 20241111
  Transmission Date: 20250114
  Serious: Yes (Other)
  Sender: BAYER HEALTHCARE LLC
  Company Number: US-BAYER-2024A152731

PATIENT
  Age: 31 Year
  Sex: Male

DRUGS (1)
  1. AFRIN NO DRIP ORIGINAL PUMP MIST [Suspect]
     Active Substance: OXYMETAZOLINE HYDROCHLORIDE
     Indication: Sinus congestion
     Dosage: 3 OR 4 TIMES A DAY, 2 SPRAY IN EACH NOSTRIL
     Route: 055

REACTIONS (5)
  - Drug dependence [Not Recovered/Not Resolved]
  - Extra dose administered [Not Recovered/Not Resolved]
  - Incorrect product administration duration [Not Recovered/Not Resolved]
  - Dyspnoea [None]
  - Nasal disorder [None]
